FAERS Safety Report 20145185 (Version 1)
Quarter: 2021Q4

REPORT INFORMATION
  Report Type: Spontaneous
  Country: JP (occurrence: JP)
  Receive Date: 20211203
  Receipt Date: 20211203
  Transmission Date: 20220304
  Serious: Yes (Other)
  Sender: FDA-Public Use
  Company Number: JP-PFIZER INC-202101690168

PATIENT

DRUGS (1)
  1. SOLANAX [Suspect]
     Active Substance: ALPRAZOLAM
     Dosage: UNK
     Route: 048

REACTIONS (3)
  - Immune thrombocytopenia [Unknown]
  - Platelet count decreased [Unknown]
  - Drug specific antibody present [Unknown]
